FAERS Safety Report 4377421-9 (Version None)
Quarter: 2004Q2

REPORT INFORMATION
  Report Type: 
  Country: None (occurrence: None)
  Receive Date: 20040614
  Receipt Date: 20040614
  Transmission Date: 20050107
  Serious: Yes (Hospitalization)
  Sender: FDA-Public Use
  Company Number: None

PATIENT
  Age: 36 Year
  Sex: Male
  Weight: 117.4816 kg

DRUGS (2)
  1. BUMEX [Suspect]
     Dosage: 1 MG HOUR IV
     Route: 042
  2. TORADOL [Suspect]
     Dosage: 15 MG 6 HOURS IV
     Route: 042

REACTIONS (1)
  - BLOOD CREATININE INCREASED [None]
